FAERS Safety Report 4394803-X (Version None)
Quarter: 2004Q3

REPORT INFORMATION
  Report Type: 
  Country: None (occurrence: None)
  Receive Date: 20040707
  Receipt Date: 20040624
  Transmission Date: 20050211
  Serious: Yes (Other)
  Sender: FDA-Public Use
  Company Number: 2004042831

PATIENT
  Age: 31 Year
  Sex: Male

DRUGS (3)
  1. GEODON [Suspect]
     Indication: ILL-DEFINED DISORDER
     Dates: start: 20040101, end: 20040101
  2. ALL OTHER THERAPEUTIC PRODUCTS(ALL OTHER THERAPEUTIC PRODUCTS) [Concomitant]
  3. POTASSIUM (POTASSIUM) [Concomitant]

REACTIONS (1)
  - COMPLEX PARTIAL SEIZURES [None]
